FAERS Safety Report 25279081 (Version 1)
Quarter: 2025Q2

REPORT INFORMATION
  Report Type: Spontaneous
  Country: DE (occurrence: DE)
  Receive Date: 20250507
  Receipt Date: 20250507
  Transmission Date: 20250716
  Serious: Yes (Other)
  Sender: GLAXOSMITHKLINE
  Company Number: None

PATIENT

DRUGS (4)
  1. BUPROPION [Interacting]
     Active Substance: BUPROPION
     Indication: Depression
     Route: 065
  2. BUPROPION [Interacting]
     Active Substance: BUPROPION
     Route: 065
  3. FENTANYL [Interacting]
     Active Substance: FENTANYL
     Indication: Intervertebral disc protrusion
     Route: 062
     Dates: start: 20250415
  4. FENTANYL [Interacting]
     Active Substance: FENTANYL
     Indication: Spinal stenosis

REACTIONS (9)
  - Serotonin syndrome [Recovered/Resolved]
  - Headache [Recovered/Resolved]
  - Dizziness [Recovered/Resolved]
  - Diplopia [Recovered/Resolved]
  - Vomiting [Recovered/Resolved]
  - Retching [Recovered/Resolved]
  - Hypoaesthesia oral [Recovered/Resolved]
  - Taste disorder [Recovered/Resolved]
  - Drug interaction [Recovered/Resolved]

NARRATIVE: CASE EVENT DATE: 20250415
